FAERS Safety Report 20376512 (Version 1)
Quarter: 2022Q1

REPORT INFORMATION
  Report Type: Spontaneous
  Country: US (occurrence: None)
  Receive Date: 20220125
  Receipt Date: 20220125
  Transmission Date: 20220423
  Serious: Yes (Hospitalization)
  Sender: FDA-Public Use
  Company Number: None

PATIENT
  Age: 21 Year
  Sex: Male

DRUGS (1)
  1. REMICADE [Suspect]
     Active Substance: INFLIXIMAB
     Indication: Colitis
     Dosage: OTHER QUANTITY : 600MG IN 250ML 0.9;?OTHER FREQUENCY : ONCE EVRY 8 WKS;?
     Dates: start: 20211005

REACTIONS (3)
  - Frequent bowel movements [None]
  - Disease progression [None]
  - Haematochezia [None]

NARRATIVE: CASE EVENT DATE: 20220115
